FAERS Safety Report 25664960 (Version 1)
Quarter: 2025Q3

REPORT INFORMATION
  Report Type: Spontaneous
  Country: US (occurrence: None)
  Receive Date: 20250809
  Receipt Date: 20250809
  Transmission Date: 20251020
  Serious: No
  Sender: FDA-CTU
  Company Number: None

PATIENT
  Age: 81 Year
  Sex: Female

DRUGS (2)
  1. DUPIXENT [Suspect]
     Active Substance: DUPILUMAB
     Dosage: OTHER FREQUENCY : EVERY 2 WEEKS;?
     Route: 058
     Dates: start: 20250621
  2. DUPIXENT [Concomitant]
     Active Substance: DUPILUMAB
     Dates: start: 20250621

REACTIONS (1)
  - Weight increased [None]

NARRATIVE: CASE EVENT DATE: 20250809
